FAERS Safety Report 13659570 (Version 1)
Quarter: 2017Q2

REPORT INFORMATION
  Report Type: Spontaneous
  Country: US (occurrence: US)
  Receive Date: 20170616
  Receipt Date: 20170616
  Transmission Date: 20170830
  Serious: Yes (Hospitalization)
  Sender: FDA-Public Use
  Company Number: None

PATIENT
  Age: 65 Year
  Sex: Female
  Weight: 122.2 kg

DRUGS (11)
  1. VANCOMYCIN [Suspect]
     Active Substance: VANCOMYCIN
     Indication: INTRAOPERATIVE CARE
     Dosage: 1750MG INTRA-OP CONTINUOS IVPB?DATE OF USE RECENT
  2. VANCOMYCIN [Suspect]
     Active Substance: VANCOMYCIN
     Indication: ANTIBIOTIC THERAPY
     Dosage: 1750MG INTRA-OP CONTINUOS IVPB?DATE OF USE RECENT
  3. LANOXIN [Concomitant]
     Active Substance: DIGOXIN
  4. PACERONE [Concomitant]
     Active Substance: AMIODARONE HYDROCHLORIDE
  5. COREG [Concomitant]
     Active Substance: CARVEDILOL
  6. FLONASE [Concomitant]
     Active Substance: FLUTICASONE PROPIONATE
  7. NEURONTIN [Concomitant]
     Active Substance: GABAPENTIN
  8. ALBUTEROL. [Concomitant]
     Active Substance: ALBUTEROL
  9. ECOTRIN [Concomitant]
     Active Substance: ASPIRIN
  10. BUMEX [Concomitant]
     Active Substance: BUMETANIDE
  11. ALPHAGAN P [Concomitant]
     Active Substance: BRIMONIDINE TARTRATE

REACTIONS (2)
  - Anaphylactic reaction [None]
  - Cardiac arrest [None]

NARRATIVE: CASE EVENT DATE: 20170301
